FAERS Safety Report 20656809 (Version 1)
Quarter: 2022Q1

REPORT INFORMATION
  Report Type: Other
  Country: AT (occurrence: AT)
  Receive Date: 20220331
  Receipt Date: 20220331
  Transmission Date: 20220423
  Serious: Yes (Other)
  Sender: FDA-Public Use
  Company Number: AT-CELLTRION INC.-2022AT003578

PATIENT

DRUGS (20)
  1. RITUXIMAB [Suspect]
     Active Substance: RITUXIMAB
     Indication: Follicular lymphoma
     Dosage: SIX CYCLES OF R-CHOP
     Route: 065
     Dates: start: 201407, end: 201411
  2. RITUXIMAB [Suspect]
     Active Substance: RITUXIMAB
     Indication: Diffuse large B-cell lymphoma
     Dosage: MAINTENANCE THERAPY
     Route: 065
     Dates: start: 201412, end: 201612
  3. RITUXIMAB [Suspect]
     Active Substance: RITUXIMAB
     Dosage: BR THERAPY, 6 CYCLES
     Route: 065
     Dates: start: 201802, end: 201807
  4. RITUXIMAB [Suspect]
     Active Substance: RITUXIMAB
     Dosage: MAINTENANCE THERAPY
     Route: 065
     Dates: start: 201807, end: 201906
  5. RITUXIMAB [Suspect]
     Active Substance: RITUXIMAB
     Dosage: R-DHAP, 1 CYCLE
     Route: 065
     Dates: start: 202002
  6. RITUXIMAB [Suspect]
     Active Substance: RITUXIMAB
     Dosage: R-ICE, TWO CYCLES
     Route: 065
     Dates: start: 202003, end: 202004
  7. RITUXIMAB [Suspect]
     Active Substance: RITUXIMAB
     Dosage: BRIDGING THERAPY
     Route: 065
     Dates: start: 202006, end: 202007
  8. POLIVY [Suspect]
     Active Substance: POLATUZUMAB VEDOTIN-PIIQ
     Indication: Diffuse large B-cell lymphoma
     Dosage: BRIDGING THERAPY
     Route: 065
     Dates: start: 202006, end: 202007
  9. POLIVY [Suspect]
     Active Substance: POLATUZUMAB VEDOTIN-PIIQ
     Indication: Follicular lymphoma
  10. CYCLOPHOSPHAMIDE [Concomitant]
     Active Substance: CYCLOPHOSPHAMIDE
     Indication: Diffuse large B-cell lymphoma
     Dosage: SIX CYCLES OF R-CHOP
     Dates: start: 201407, end: 201411
  11. DEXAMETHASONE [Concomitant]
     Active Substance: DEXAMETHASONE
     Indication: Diffuse large B-cell lymphoma
     Dosage: UNK
     Dates: start: 202002
  12. CISPLATIN [Concomitant]
     Active Substance: CISPLATIN
     Indication: Diffuse large B-cell lymphoma
     Dosage: UNK
     Dates: start: 202002
  13. DOXORUBICIN [Concomitant]
     Active Substance: DOXORUBICIN
     Indication: Diffuse large B-cell lymphoma
     Dosage: SIX CYCLES OF R-CHOP
     Dates: start: 201407, end: 201411
  14. VINCRISTINE [Concomitant]
     Active Substance: VINCRISTINE
     Indication: Diffuse large B-cell lymphoma
     Dosage: SIX CYCLES OF R-CHOP
     Dates: start: 201407, end: 201411
  15. BENDAMUSTINE [Concomitant]
     Active Substance: BENDAMUSTINE
     Indication: Diffuse large B-cell lymphoma
     Dosage: BR THERAPY, 6 CYCLES
     Dates: start: 201802, end: 201807
  16. BENDAMUSTINE [Concomitant]
     Active Substance: BENDAMUSTINE
     Dosage: BRIDGING THERAPY
     Dates: start: 202006, end: 202007
  17. IFOSFAMIDE [Concomitant]
     Active Substance: IFOSFAMIDE
     Indication: Diffuse large B-cell lymphoma
     Dosage: R-ICE
     Dates: start: 202003, end: 202004
  18. ETOPOSIDE [Concomitant]
     Active Substance: ETOPOSIDE
     Indication: Diffuse large B-cell lymphoma
     Dosage: RICE
     Dates: start: 202003, end: 202004
  19. PREDNISOLONE [Concomitant]
     Active Substance: PREDNISOLONE
     Indication: Diffuse large B-cell lymphoma
     Dosage: SIX CYCLES OF R-CHOP
     Dates: start: 201407, end: 201411
  20. CARBOPLATIN [Concomitant]
     Active Substance: CARBOPLATIN
     Indication: Diffuse large B-cell lymphoma
     Dosage: RICE
     Dates: start: 202003, end: 202004

REACTIONS (2)
  - Renal failure [Unknown]
  - Disease progression [Unknown]

NARRATIVE: CASE EVENT DATE: 20180201
